FAERS Safety Report 9868338 (Version 1)
Quarter: 2014Q1

REPORT INFORMATION
  Report Type: Spontaneous
  Country: US (occurrence: US)
  Receive Date: 20140204
  Receipt Date: 20140204
  Transmission Date: 20141002
  Serious: Yes (Death)
  Sender: FDA-Public Use
  Company Number: CHPA2014US001707

PATIENT
  Age: 35 Year
  Sex: Female

DRUGS (8)
  1. IBUPROFEN [Suspect]
     Route: 048
  2. TRAZODONE [Suspect]
     Route: 048
  3. CITALOPRAM [Suspect]
     Route: 048
  4. CLONAZEPAM [Suspect]
     Route: 048
  5. HYDROXYZINE [Suspect]
     Route: 048
  6. FLUOXETINE [Suspect]
     Route: 048
  7. VALACYCLOVIR [Suspect]
     Route: 048
  8. ETHANOL [Suspect]
     Route: 048

REACTIONS (1)
  - Completed suicide [Fatal]
